FAERS Safety Report 4883850-7 (Version None)
Quarter: 2006Q1

REPORT INFORMATION
  Report Type: 
  Country: None (occurrence: None)
  Receive Date: 20060113
  Receipt Date: 20051222
  Transmission Date: 20060701
  Serious: Yes (Hospitalization, Other)
  Sender: FDA-Public Use
  Company Number: US_0510123100

PATIENT
  Age: 54 Year
  Sex: 0
  Weight: 63.6 kg

DRUGS (8)
  1. ZYPREXA [Suspect]
     Indication: BIPOLAR DISORDER
     Dosage: 2.5 MG, DAILY 1/D, ORAL; 5 MG, DAILY 1/D, ORAL; 2.5 MG, DAILY 1/D, ORAL
     Route: 048
     Dates: start: 20021022, end: 20030729
  2. ZYPREXA [Suspect]
     Indication: BIPOLAR DISORDER
     Dosage: 2.5 MG, DAILY 1/D, ORAL; 5 MG, DAILY 1/D, ORAL; 2.5 MG, DAILY 1/D, ORAL
     Route: 048
     Dates: start: 20030729, end: 20030806
  3. ZYPREXA [Suspect]
     Indication: BIPOLAR DISORDER
     Dosage: 2.5 MG, DAILY 1/D, ORAL; 5 MG, DAILY 1/D, ORAL; 2.5 MG, DAILY 1/D, ORAL
     Route: 048
     Dates: start: 20020930, end: 20051022
  4. ATENOLOL [Concomitant]
  5. LISINOPRIL [Concomitant]
  6. PAXIL [Concomitant]
  7. PROTONIX [Concomitant]
  8. TOPAMAX [Concomitant]

REACTIONS (15)
  - ALCOHOLISM [None]
  - CHOLECYSTITIS CHRONIC [None]
  - CHOLELITHIASIS [None]
  - CLOSTRIDIUM COLITIS [None]
  - CONFUSIONAL STATE [None]
  - DIABETES MELLITUS [None]
  - DIABETIC NEUROPATHY [None]
  - DIARRHOEA [None]
  - GLYCOSYLATED HAEMOGLOBIN INCREASED [None]
  - HEPATIC STEATOSIS [None]
  - MANIA [None]
  - PANCREATIC PSEUDOCYST [None]
  - PANCREATITIS [None]
  - WEIGHT INCREASED [None]
  - WHITE BLOOD CELL COUNT INCREASED [None]
